FAERS Safety Report 17931214 (Version 3)
Quarter: 2022Q3

REPORT INFORMATION
  Report Type: Report from Study
  Country: AU (occurrence: AU)
  Receive Date: 20200623
  Receipt Date: 20220811
  Transmission Date: 20221027
  Serious: Yes (Hospitalization)
  Sender: FDA-Public Use
  Company Number: AU-ABBVIE-20P-008-3437489-00

PATIENT
  Age: 2 Year
  Sex: Male
  Weight: 11.4 kg

DRUGS (17)
  1. VENETOCLAX [Suspect]
     Active Substance: VENETOCLAX
     Indication: Refractory cancer
     Route: 050
     Dates: start: 20200507, end: 20200507
  2. VENETOCLAX [Suspect]
     Active Substance: VENETOCLAX
     Indication: Recurrent cancer
     Route: 050
     Dates: start: 20200508, end: 20200619
  3. CYCLOPHOSPHAMIDE [Suspect]
     Active Substance: CYCLOPHOSPHAMIDE
     Indication: Refractory cancer
     Dosage: MAXIMUM OF 5 DAYS EVERY 21 DAYS
     Route: 042
     Dates: start: 20200509, end: 20200614
  4. CYCLOPHOSPHAMIDE [Suspect]
     Active Substance: CYCLOPHOSPHAMIDE
     Indication: Recurrent cancer
  5. TOPOTECAN [Suspect]
     Active Substance: TOPOTECAN HYDROCHLORIDE
     Indication: Recurrent cancer
     Dosage: MAXIMUM OF 5 DAYS EVERY 21 DAYS
     Route: 042
     Dates: start: 20200509, end: 20200614
  6. TOPOTECAN [Suspect]
     Active Substance: TOPOTECAN HYDROCHLORIDE
     Indication: Refractory cancer
  7. HEPARIN SALINE LOCK [Concomitant]
     Indication: Prophylaxis
     Dosage: 50UI/5ML
     Route: 042
     Dates: start: 20200507
  8. SULFAMETHOXAZOLE- TRIMETHOPRIM (BACTRIM) [Concomitant]
     Indication: Antifungal prophylaxis
     Route: 050
     Dates: start: 20200320
  9. SODIUM BICARBONATE MOUTHWASH [Concomitant]
     Indication: Dental disorder prophylaxis
     Route: 048
     Dates: start: 20200507
  10. NILSTAT [Concomitant]
     Active Substance: NYSTATIN
     Indication: Antifungal prophylaxis
     Route: 048
     Dates: start: 20200507
  11. ONDANSETRON [Concomitant]
     Active Substance: ONDANSETRON
     Indication: Prophylaxis of nausea and vomiting
     Route: 042
     Dates: start: 20200430
  12. METOCLOPRAMIDE [Concomitant]
     Active Substance: METOCLOPRAMIDE
     Indication: Prophylaxis of nausea and vomiting
     Route: 042
     Dates: start: 20200509
  13. ACETAMINOPHEN [Concomitant]
     Active Substance: ACETAMINOPHEN
     Indication: Facial pain
     Route: 050
     Dates: start: 20200324
  14. OXYCODONE [Concomitant]
     Active Substance: OXYCODONE
     Indication: Pain
     Route: 050
     Dates: start: 20200507
  15. ACYCLOVIR [Concomitant]
     Active Substance: ACYCLOVIR
     Indication: Antiviral prophylaxis
     Route: 050
     Dates: start: 20200408
  16. ALLOPURINOL [Concomitant]
     Active Substance: ALLOPURINOL
     Indication: Prophylaxis
     Route: 042
     Dates: start: 20200507, end: 20200514
  17. MESNA [Concomitant]
     Active Substance: MESNA
     Indication: Infection prophylaxis
     Dosage: FOR 5 DAYS WITH EACH CYCLE OF CYCLOPHOSPHAMIDE
     Route: 042
     Dates: start: 20200509, end: 20200614

REACTIONS (2)
  - Clostridial infection [Recovered/Resolved]
  - Facial pain [Not Recovered/Not Resolved]

NARRATIVE: CASE EVENT DATE: 20200608
